FAERS Safety Report 5742543-4 (Version None)
Quarter: 2008Q2

REPORT INFORMATION
  Report Type: 
  Country: None (occurrence: None)
  Receive Date: 20080519
  Receipt Date: 20080512
  Transmission Date: 20081010
  Serious: Yes (Other)
  Sender: FDA-Public Use
  Company Number: US-BAYER-200811862BCC

PATIENT
  Sex: Male

DRUGS (1)
  1. ORIGINAL ALKA-SELTZER TABLETS [Suspect]
     Indication: DYSPEPSIA
     Route: 048

REACTIONS (1)
  - GASTRIC CANCER [None]
